FAERS Safety Report 6114299-7 (Version None)
Quarter: 2009Q1

REPORT INFORMATION
  Report Type: 
  Country: None (occurrence: None)
  Receive Date: 20090312
  Receipt Date: 20081209
  Transmission Date: 20090719
  Serious: No
  Sender: FDA-Public Use
  Company Number: US-ABBOTT-08P-163-0492239-00

PATIENT
  Sex: Male

DRUGS (5)
  1. DEPAKOTE [Suspect]
     Indication: BIPOLAR DISORDER
     Dosage: 850MG BID
     Route: 048
     Dates: start: 20081101
  2. LASIX [Concomitant]
     Indication: CARDIAC DISORDER
  3. ZAROXOLYN [Concomitant]
     Indication: CARDIAC DISORDER
  4. BENICAR [Concomitant]
     Indication: CARDIAC DISORDER
  5. NITROGLYCERIN [Concomitant]
     Indication: CARDIAC DISORDER

REACTIONS (4)
  - AGGRESSION [None]
  - FEAR [None]
  - HALLUCINATION [None]
  - INSOMNIA [None]
